FAERS Safety Report 9365655 (Version 1)
Quarter: 2013Q2

REPORT INFORMATION
  Report Type: Spontaneous
  Country: US (occurrence: None)
  Receive Date: 20130624
  Receipt Date: 20130624
  Transmission Date: 20140414
  Serious: Yes (Other)
  Sender: FDA-Public Use
  Company Number: None

PATIENT
  Age: 46 Year
  Sex: Male

DRUGS (5)
  1. NORVIR, 100 MG, SOFTGEL, ABBVIE [Suspect]
     Route: 048
  2. REYATAZ [Suspect]
     Route: 048
  3. TRUVADA [Concomitant]
  4. VITAMIN D [Concomitant]
  5. PAIN MEDICATIONS [Concomitant]

REACTIONS (6)
  - Bone pain [None]
  - Pyrexia [None]
  - Abnormal behaviour [None]
  - Self-injurious ideation [None]
  - Alcohol use [None]
  - Amnesia [None]
